FAERS Safety Report 5187929-4 (Version None)
Quarter: 2006Q4

REPORT INFORMATION
  Report Type: 
  Country: None (occurrence: None)
  Receive Date: 20061221
  Receipt Date: 20061012
  Transmission Date: 20070319
  Serious: Yes (Hospitalization, Other)
  Sender: FDA-Public Use
  Company Number: 2006AP04833

PATIENT
  Age: 18714 Day
  Sex: Male
  Weight: 68 kg

DRUGS (49)
  1. IRESSA [Suspect]
     Indication: NON-SMALL CELL LUNG CANCER
     Route: 048
     Dates: start: 20060908, end: 20060922
  2. OXYCONTIN [Concomitant]
     Indication: CANCER PAIN
     Route: 048
     Dates: start: 20050303
  3. ALLOPURINOL [Concomitant]
     Indication: GOUT
     Route: 048
     Dates: start: 20060210
  4. FERROMIA [Concomitant]
     Indication: ANAEMIA
     Route: 048
     Dates: start: 20060619
  5. SELBEX [Concomitant]
     Indication: GASTRIC MUCOSAL LESION
     Route: 048
     Dates: start: 20060908, end: 20060922
  6. RADIOTHERAPY [Concomitant]
     Dosage: TO THORACIC VERTEBRAE AT TH8-12 (40GY)
     Dates: start: 20040611, end: 20040701
  7. CARBOPLATIN [Concomitant]
     Dates: start: 20040512, end: 20040512
  8. CARBOPLATIN [Concomitant]
     Dates: start: 20040623, end: 20040623
  9. CARBOPLATIN [Concomitant]
     Dates: start: 20050725, end: 20050725
  10. CARBOPLATIN [Concomitant]
     Dates: start: 20050908, end: 20050908
  11. CARBOPLATIN [Concomitant]
     Dates: start: 20051013, end: 20051013
  12. CARBOPLATIN [Concomitant]
     Dates: start: 20051114, end: 20051114
  13. CARBOPLATIN [Concomitant]
     Dates: start: 20051222, end: 20051222
  14. CARBOPLATIN [Concomitant]
     Dates: start: 20060126, end: 20060126
  15. CARBOPLATIN [Concomitant]
     Dates: start: 20060227, end: 20060227
  16. CARBOPLATIN [Concomitant]
     Dates: start: 20060327, end: 20060327
  17. CARBOPLATIN [Concomitant]
     Dates: start: 20060427, end: 20060427
  18. CARBOPLATIN [Concomitant]
     Dates: start: 20060529, end: 20060529
  19. CARBOPLATIN [Concomitant]
     Dates: start: 20060629, end: 20060629
  20. CARBOPLATIN [Concomitant]
     Dates: start: 20060807, end: 20060807
  21. PACLITAXEL [Concomitant]
     Dates: start: 20040525, end: 20040525
  22. PACLITAXEL [Concomitant]
     Dates: start: 20040623, end: 20040623
  23. GEMCITABINE [Concomitant]
     Dates: start: 20040723, end: 20040723
  24. GEMCITABINE [Concomitant]
     Dates: start: 20040819, end: 20040819
  25. GEMCITABINE [Concomitant]
     Dates: start: 20040922, end: 20040922
  26. GEMCITABINE [Concomitant]
     Dates: start: 20041019, end: 20041019
  27. GEMCITABINE [Concomitant]
     Dates: start: 20041208, end: 20041208
  28. GEMCITABINE [Concomitant]
     Dates: start: 20050111, end: 20050111
  29. GEMCITABINE [Concomitant]
     Dates: start: 20050223, end: 20050223
  30. GEMCITABINE [Concomitant]
     Dates: start: 20050512, end: 20050512
  31. GEMCITABINE [Concomitant]
     Dates: start: 20050725, end: 20050725
  32. DOCETAXEL [Concomitant]
     Dates: start: 20050908, end: 20050908
  33. DOCETAXEL [Concomitant]
     Dates: start: 20051013, end: 20051013
  34. VINORELBINE [Concomitant]
     Dates: start: 20051114, end: 20051114
  35. VINORELBINE [Concomitant]
     Dates: start: 20051222, end: 20051222
  36. IRINOTECAN HCL [Concomitant]
     Dates: start: 20060126, end: 20060126
  37. TS-1 [Concomitant]
     Dates: start: 20060227, end: 20060227
  38. TS-1 [Concomitant]
     Dates: start: 20060327, end: 20060327
  39. TS-1 [Concomitant]
     Dates: start: 20060427, end: 20060427
  40. TS-1 [Concomitant]
     Dates: start: 20060529, end: 20060529
  41. TS-1 [Concomitant]
     Dates: start: 20060629, end: 20060629
  42. TS-1 [Concomitant]
     Dates: start: 20060807, end: 20060807
  43. CISPLATIN [Concomitant]
     Dates: start: 20040723, end: 20040723
  44. CISPLATIN [Concomitant]
     Dates: start: 20040819, end: 20040819
  45. CISPLATIN [Concomitant]
     Dates: start: 20040922, end: 20040922
  46. CISPLATIN [Concomitant]
     Dates: start: 20041019, end: 20041019
  47. CISPLATIN [Concomitant]
     Dates: start: 20041208, end: 20041208
  48. CISPLATIN [Concomitant]
     Dates: start: 20050111, end: 20050111
  49. CISPLATIN [Concomitant]
     Dates: start: 20050223, end: 20050223

REACTIONS (8)
  - ALANINE AMINOTRANSFERASE INCREASED [None]
  - ASPARTATE AMINOTRANSFERASE INCREASED [None]
  - BACK PAIN [None]
  - BLOOD LACTATE DEHYDROGENASE INCREASED [None]
  - GLUCOSE TOLERANCE DECREASED [None]
  - INCREASED APPETITE [None]
  - INTERSTITIAL LUNG DISEASE [None]
  - SPINAL DISORDER [None]
